FAERS Safety Report 8061556-3 (Version None)
Quarter: 2012Q1

REPORT INFORMATION
  Report Type: 
  Country: None (occurrence: None)
  Receive Date: 20120121
  Receipt Date: 20120113
  Transmission Date: 20120608
  Serious: Yes (Hospitalization, Other)
  Sender: FDA-Public Use
  Company Number: JP-AMGEN-JPNSP2012002771

PATIENT
  Age: 71 Year
  Sex: Female
  Weight: 43 kg

DRUGS (2)
  1. ENBREL [Suspect]
     Indication: PRODUCT USED FOR UNKNOWN INDICATION
     Dosage: UNK
     Route: 058
  2. RHEUMATREX [Suspect]
     Dosage: UNK
     Route: 048

REACTIONS (3)
  - RENAL IMPAIRMENT [None]
  - BONE MARROW FAILURE [None]
  - ANAEMIA [None]
